FAERS Safety Report 15363735 (Version 2)
Quarter: 2018Q4

REPORT INFORMATION
  Report Type: Spontaneous
  Country: US (occurrence: US)
  Receive Date: 20180908
  Receipt Date: 20180918
  Transmission Date: 20190204
  Serious: Yes (Hospitalization)
  Sender: FDA-Public Use
  Company Number: US-IHEALTH-2018-US-014391

PATIENT
  Age: 28 Year
  Sex: Female

DRUGS (2)
  1. BACTRIM [Suspect]
     Active Substance: SULFAMETHOXAZOLE\TRIMETHOPRIM
  2. AZO URINARY PAIN RELIEF [Suspect]
     Active Substance: PHENAZOPYRIDINE HYDROCHLORIDE
     Route: 048

REACTIONS (3)
  - Off label use [Recovered/Resolved]
  - Jaundice [Recovered/Resolved]
  - Blood creatinine increased [Recovered/Resolved]
